FAERS Safety Report 4613575-4 (Version None)
Quarter: 2005Q1

REPORT INFORMATION
  Report Type: 
  Country: None (occurrence: None)
  Receive Date: 20050315
  Receipt Date: 20050301
  Transmission Date: 20050727
  Serious: No
  Sender: FDA-Public Use
  Company Number: A01200501196

PATIENT
  Age: 58 Year
  Sex: Female

DRUGS (4)
  1. ELOXATIN [Suspect]
     Indication: METASTASES TO LIVER
     Dosage: INTRAVENOUS NOS
     Route: 042
     Dates: start: 20050117, end: 20050117
  2. ELOXATIN [Suspect]
     Indication: RECTAL CANCER
     Dosage: INTRAVENOUS NOS
     Route: 042
     Dates: start: 20050117, end: 20050117
  3. ELVORINE (CALCIUM LEVOFOLINATE) [Concomitant]
  4. FLUOROURACIL [Concomitant]

REACTIONS (2)
  - DISSEMINATED INTRAVASCULAR COAGULATION [None]
  - PLATELET COUNT DECREASED [None]
